FAERS Safety Report 14120650 (Version 1)
Quarter: 2017Q4

REPORT INFORMATION
  Report Type: Spontaneous
  Country: IT (occurrence: IT)
  Receive Date: 20171024
  Receipt Date: 20171024
  Transmission Date: 20180321
  Serious: Yes (Death, Life-Threatening)
  Sender: FDA-Public Use
  Company Number: IT-HERITAGE PHARMACEUTICALS-2017HTG00314

PATIENT
  Age: 60 Year
  Sex: Male

DRUGS (2)
  1. DESMOPRESSIN ACETATE. [Suspect]
     Active Substance: DESMOPRESSIN ACETATE
     Indication: OPTIC ISCHAEMIC NEUROPATHY
     Dosage: 2 ?G/0.5 ML, TWICE
     Route: 056
  2. BETAMETHASONE. [Concomitant]
     Active Substance: BETAMETHASONE
     Indication: OPTIC ISCHAEMIC NEUROPATHY
     Dosage: 2 MG/0.5 ML, TWICE
     Route: 056

REACTIONS (2)
  - Acute myocardial infarction [Unknown]
  - Cardio-respiratory arrest [Fatal]
